FAERS Safety Report 8244864-2 (Version None)
Quarter: 2012Q1

REPORT INFORMATION
  Report Type: 
  Country: None (occurrence: None)
  Receive Date: 20120329
  Receipt Date: 20110817
  Transmission Date: 20120608
  Serious: No
  Sender: FDA-Public Use
  Company Number: US-MYLANLABS-2011S1014203

PATIENT
  Age: 66 Year
  Sex: Female
  Weight: 70.31 kg

DRUGS (13)
  1. STOOL SOFTENER [Concomitant]
     Dosage: 3 TABLETS
  2. VIACTIV CALCIUM PLUS VITAMIN D + K [Concomitant]
  3. FOSAMAX [Concomitant]
  4. AMITRIPTYLINE HCL [Concomitant]
  5. EPIPEN [Concomitant]
  6. VITAMIN B-12 [Concomitant]
  7. SKELAXIN [Concomitant]
  8. GABAPENTIN [Concomitant]
  9. OXYCODONE HCL [Concomitant]
     Indication: PAIN
  10. CLARITIN /00917501/ [Concomitant]
  11. FENTANYL-100 [Suspect]
     Indication: BACK PAIN
     Dosage: Q3D
     Route: 062
     Dates: start: 20110401, end: 20110401
  12. CALCIUM CARBONATE [Concomitant]
  13. MULTI-VITAMINS [Concomitant]

REACTIONS (1)
  - DRUG WITHDRAWAL SYNDROME [None]
